FAERS Safety Report 23281995 (Version 1)
Quarter: 2023Q4

REPORT INFORMATION
  Report Type: Spontaneous
  Country: TR (occurrence: TR)
  Receive Date: 20231211
  Receipt Date: 20231211
  Transmission Date: 20240110
  Serious: Yes (Other)
  Sender: FDA-Public Use
  Company Number: TR-TEVA-VS-3135049

PATIENT
  Age: 10 Year

DRUGS (2)
  1. METHYLPHENIDATE [Suspect]
     Active Substance: METHYLPHENIDATE
     Indication: Autism spectrum disorder
     Dosage: DOSAGE AT 10-YEAR-OLD NOT STATED; RESTARTED METHYLPHENIDATE AT 19-YEAR-OLD, INITIAL DOSAGE NOT ST...
     Route: 065
  2. RISPERIDONE [Concomitant]
     Active Substance: RISPERIDONE
     Indication: Autism spectrum disorder
     Route: 065

REACTIONS (1)
  - Obsessive-compulsive symptom [Recovering/Resolving]
